FAERS Safety Report 15367324 (Version 1)
Quarter: 2018Q3

REPORT INFORMATION
  Report Type: Report from Study
  Country: US (occurrence: US)
  Receive Date: 20180910
  Receipt Date: 20180910
  Transmission Date: 20181010
  Serious: Yes (Other)
  Sender: FDA-Public Use
  Company Number: US-BAYER-2018-154127

PATIENT
  Age: 61 Year
  Sex: Male

DRUGS (1)
  1. NEXAVAR [Suspect]
     Active Substance: SORAFENIB
     Indication: HEPATOCELLULAR CARCINOMA
     Dosage: 400 MG, BID
     Route: 048
     Dates: start: 20180810, end: 20180821

REACTIONS (6)
  - Fatigue [None]
  - Hepatitis [None]
  - Pain of skin [Recovered/Resolved]
  - Pain in extremity [None]
  - Skin lesion [Recovered/Resolved]
  - Insomnia [None]

NARRATIVE: CASE EVENT DATE: 201808
